FAERS Safety Report 6620856-1 (Version None)
Quarter: 2010Q1

REPORT INFORMATION
  Report Type: 
  Country: None (occurrence: None)
  Receive Date: 20100309
  Receipt Date: 20090520
  Transmission Date: 20100710
  Serious: No
  Sender: FDA-Public Use
  Company Number: US-BIOGENIDEC-2009BI015339

PATIENT
  Age: 48 Year
  Sex: Female

DRUGS (4)
  1. AVONEX [Suspect]
     Indication: MULTIPLE SCLEROSIS
     Route: 030
     Dates: start: 20080301
  2. PROZAC [Concomitant]
     Indication: DEPRESSION
     Route: 048
     Dates: start: 20060101
  3. PROZAC [Concomitant]
     Indication: DEPRESSED MOOD
     Route: 048
     Dates: start: 20060101
  4. PROZAC [Concomitant]
     Indication: DECREASED INTEREST
     Route: 048
     Dates: start: 20060101

REACTIONS (2)
  - DECREASED INTEREST [None]
  - DEPRESSED MOOD [None]
